FAERS Safety Report 5406019-6 (Version None)
Quarter: 2007Q3

REPORT INFORMATION
  Report Type: 
  Country: None (occurrence: None)
  Receive Date: 20070802
  Receipt Date: 20070802
  Transmission Date: 20080115
  Serious: Yes (Other)
  Sender: FDA-Public Use
  Company Number: None

PATIENT
  Sex: Female
  Weight: 92.9874 kg

DRUGS (2)
  1. ARTHROTEC [Suspect]
     Indication: ARTHRALGIA
     Dosage: 50MG BID PO
     Route: 048
     Dates: start: 20060901, end: 20061201
  2. REMICADE [Suspect]

REACTIONS (1)
  - LYMPHOMA [None]
